FAERS Safety Report 4784878-8 (Version None)
Quarter: 2005Q3

REPORT INFORMATION
  Report Type: 
  Country: None (occurrence: None)
  Receive Date: 20050930
  Receipt Date: 20050927
  Transmission Date: 20060218
  Serious: Yes (Death)
  Sender: FDA-Public Use
  Company Number: PHHO2005JP15183

PATIENT
  Age: 69 Year
  Sex: Male
  Weight: 44 kg

DRUGS (9)
  1. DIOVAN [Suspect]
     Indication: HYPERTENSION
     Dosage: 40 MG, QD
     Route: 048
     Dates: start: 20030519, end: 20041215
  2. DIOVAN [Suspect]
     Dosage: 80 MG, QD
     Route: 048
     Dates: start: 20041216
  3. BUFFERIN [Concomitant]
     Indication: ANGINA PECTORIS
  4. AMLODIPINE BESYLATE [Concomitant]
     Indication: HYPERTENSION
  5. KINEDAK [Concomitant]
     Indication: DIABETES MELLITUS
  6. LASIX [Concomitant]
     Indication: CARDIAC FAILURE
  7. MEXITIL [Concomitant]
     Indication: DIABETES MELLITUS
  8. TAKEPRON [Concomitant]
  9. LENDORMIN [Concomitant]

REACTIONS (2)
  - CARDIO-RESPIRATORY ARREST [None]
  - ELECTROMECHANICAL DISSOCIATION [None]
